FAERS Safety Report 15298980 (Version 1)
Quarter: 2018Q3

REPORT INFORMATION
  Report Type: Spontaneous
  Country: US (occurrence: US)
  Receive Date: 20180821
  Receipt Date: 20180821
  Transmission Date: 20181010
  Serious: No
  Sender: FDA-Public Use
  Company Number: US-DRREDDYS-USA/USA/18/0097724

PATIENT
  Age: 9 Year
  Sex: Male
  Weight: 23.63 kg

DRUGS (1)
  1. TIZANIDINE HYDROCHLORIDE. [Suspect]
     Active Substance: TIZANIDINE HYDROCHLORIDE
     Indication: DYSTONIA
     Route: 065

REACTIONS (7)
  - Product quality issue [Unknown]
  - Abnormal behaviour [Unknown]
  - Discomfort [Unknown]
  - Adverse event [Unknown]
  - Wrong technique in product usage process [Unknown]
  - Crying [Unknown]
  - Agitation [Unknown]
